FAERS Safety Report 8576483 (Version 2)
Quarter: 2012Q4

REPORT INFORMATION
  Report Type: 
  Country: US (occurrence: US)
  Receive Date: 20120523
  Receipt Date: 20120830
  Transmission Date: 20130627
  Serious: Yes (Hospitalization, Other)
  Sender: FDA-Public Use
  Company Number: US-ELI_LILLY_AND_COMPANY-US201009008277

PATIENT
  Age: 69 Year
  Sex: Female
  Weight: 66.67 kg

DRUGS (5)
  1. FORTEO [Suspect]
     Indication: OSTEOPOROSIS
     Dosage: 20 ug, qd
     Route: 065
     Dates: start: 201009
  2. FORTEO [Suspect]
     Dosage: 20 ug, qd
     Route: 065
  3. FORTEO [Suspect]
     Dosage: 20 ug, qd
     Route: 065
  4. FORTEO [Suspect]
     Dosage: 20 ug, qd
     Route: 065
  5. FORTEO [Suspect]
     Dosage: 20 ug, qd

REACTIONS (23)
  - Arthritis [Recovering/Resolving]
  - Lower limb fracture [Recovering/Resolving]
  - Fall [Recovered/Resolved]
  - Joint effusion [Not Recovered/Not Resolved]
  - Joint swelling [Unknown]
  - Pain in extremity [Recovering/Resolving]
  - Pain in extremity [Unknown]
  - Visual acuity reduced [Unknown]
  - Dental caries [Unknown]
  - Oral pain [Unknown]
  - Fatigue [Not Recovered/Not Resolved]
  - Fall [Recovered/Resolved]
  - Somnolence [Unknown]
  - Feeling abnormal [Unknown]
  - Mood altered [Unknown]
  - Fall [Recovered/Resolved]
  - Gait disturbance [Recovered/Resolved]
  - Contusion [Unknown]
  - Osteoporosis [Unknown]
  - Animal scratch [Unknown]
  - Balance disorder [Unknown]
  - Tooth disorder [Unknown]
  - Arthralgia [Recovering/Resolving]
